FAERS Safety Report 6403681-6 (Version None)
Quarter: 2009Q4

REPORT INFORMATION
  Report Type: 
  Country: None (occurrence: None)
  Receive Date: 20091016
  Receipt Date: 20091008
  Transmission Date: 20100525
  Serious: Yes (Hospitalization)
  Sender: FDA-Public Use
  Company Number: ES-JNJFOC-20090907506

PATIENT
  Sex: Female
  Weight: 77 kg

DRUGS (12)
  1. EPREX [Suspect]
     Dosage: MONDAY, WEDNESDAY, FRIDAY
     Route: 058
  2. EPREX [Suspect]
     Indication: ANAEMIA
     Route: 058
  3. VELCADE [Suspect]
     Route: 042
  4. VELCADE [Suspect]
     Indication: MULTIPLE MYELOMA
     Dosage: ^DAYS 1, 4, 8, 11^
     Route: 042
  5. DURAGESIC-100 [Suspect]
     Dosage: DOSE ^50^
     Route: 062
  6. DURAGESIC-100 [Suspect]
     Dosage: DOSE ^16.6667^
     Route: 062
  7. DURAGESIC-100 [Suspect]
     Indication: BONE PAIN
     Dosage: DOSE ^25^
     Route: 062
  8. DEXAMETHASONE 0.5MG TAB [Suspect]
     Route: 048
     Dates: start: 20090803, end: 20090903
  9. DEXAMETHASONE 0.5MG TAB [Suspect]
     Indication: MULTIPLE MYELOMA
     Route: 048
     Dates: start: 20090803, end: 20090903
  10. ZOLPIDEM [Concomitant]
     Indication: INSOMNIA
     Dosage: DOSE ^5^
     Route: 048
  11. ACYCLOVIR [Concomitant]
     Indication: ANTIVIRAL PROPHYLAXIS
     Dosage: DOSE ^800^
     Route: 048
  12. MIRTAZAPINE [Concomitant]
     Indication: ANXIETY
     Dosage: DOSE ^15^
     Route: 048

REACTIONS (5)
  - ANAEMIA [None]
  - NEUTROPENIA [None]
  - ORAL CANDIDIASIS [None]
  - THROMBOCYTOPENIA [None]
  - URINARY TRACT INFECTION [None]
